FAERS Safety Report 11673996 (Version 1)
Quarter: 2015Q4

REPORT INFORMATION
  Report Type: Spontaneous
  Country: US (occurrence: US)
  Receive Date: 20151027
  Receipt Date: 20151027
  Transmission Date: 20160304
  Serious: No
  Sender: FDA-Public Use
  Company Number: US-ELI_LILLY_AND_COMPANY-US201008001626

PATIENT
  Sex: Female

DRUGS (4)
  1. FORTEO [Suspect]
     Active Substance: TERIPARATIDE
     Indication: SPINAL DISORDER
     Dosage: 20 UG, DAILY (1/D)
  2. KLONOPIN [Concomitant]
     Active Substance: CLONAZEPAM
  3. WELLBUTRIN [Concomitant]
     Active Substance: BUPROPION HYDROCHLORIDE
  4. ZOLOFT [Concomitant]
     Active Substance: SERTRALINE HYDROCHLORIDE

REACTIONS (9)
  - Joint swelling [Unknown]
  - Constipation [Unknown]
  - Upper respiratory tract infection [Unknown]
  - Back pain [Unknown]
  - Pain [Unknown]
  - Nausea [Unknown]
  - Peripheral swelling [Unknown]
  - Seasonal allergy [Unknown]
  - Increased appetite [Unknown]
